FAERS Safety Report 13172691 (Version 1)
Quarter: 2017Q1

REPORT INFORMATION
  Report Type: Spontaneous
  Country: US (occurrence: US)
  Receive Date: 20170131
  Receipt Date: 20170131
  Transmission Date: 20170428
  Serious: No
  Sender: FDA-Public Use
  Company Number: US-ABBVIE-16K-163-1643614-00

PATIENT
  Age: 52 Year
  Sex: Male
  Weight: 77.18 kg

DRUGS (7)
  1. HUMIRA [Suspect]
     Active Substance: ADALIMUMAB
     Indication: CROHN^S DISEASE
     Dosage: LOADING DOSE
     Route: 058
     Dates: start: 20160323, end: 20160323
  2. HUMIRA [Suspect]
     Active Substance: ADALIMUMAB
     Dosage: LOADING DOSE; TWO WEEKS AFTER 160MG DOSE
     Route: 058
     Dates: start: 201604, end: 201604
  3. PEPCID [Concomitant]
     Active Substance: FAMOTIDINE
     Indication: CHRONIC GASTRITIS
  4. HUMIRA [Suspect]
     Active Substance: ADALIMUMAB
     Route: 058
     Dates: start: 20160525
  5. COLESTIPOL [Concomitant]
     Active Substance: COLESTIPOL
     Indication: CHRONIC GASTRITIS
  6. HUMIRA [Suspect]
     Active Substance: ADALIMUMAB
     Dosage: TWO WEEKS AFTER 80MG DOSE
     Route: 058
     Dates: start: 201604, end: 20160525
  7. SUCRALFATE. [Concomitant]
     Active Substance: SUCRALFATE
     Indication: CHRONIC GASTRITIS

REACTIONS (4)
  - Arthralgia [Not Recovered/Not Resolved]
  - Sinus pain [Recovered/Resolved]
  - Toothache [Not Recovered/Not Resolved]
  - Abdominal pain [Not Recovered/Not Resolved]

NARRATIVE: CASE EVENT DATE: 2016
